FAERS Safety Report 18895960 (Version 1)
Quarter: 2021Q1

REPORT INFORMATION
  Report Type: Report from Study
  Country: None (occurrence: US)
  Receive Date: 20210216
  Receipt Date: 20210216
  Transmission Date: 20210420
  Serious: Yes (Hospitalization)
  Sender: FDA-Public Use
  Company Number: US-ABBVIE-20K-163-3418931-00

PATIENT
  Sex: Female

DRUGS (3)
  1. HUMIRA [Suspect]
     Active Substance: ADALIMUMAB
     Indication: RHEUMATOID ARTHRITIS
     Route: 058
  2. HUMIRA [Suspect]
     Active Substance: ADALIMUMAB
     Indication: RHEUMATOID ARTHRITIS
     Dosage: CITRATE FREE
     Route: 058
     Dates: start: 202002
  3. METHOTREXATE. [Suspect]
     Active Substance: METHOTREXATE
     Indication: PRODUCT USED FOR UNKNOWN INDICATION
     Route: 065
     Dates: end: 2019

REACTIONS (18)
  - Insomnia [Unknown]
  - Arthropathy [Unknown]
  - General physical condition abnormal [Unknown]
  - Pain in extremity [Unknown]
  - Concussion [Unknown]
  - Head injury [Unknown]
  - Pneumonia [Recovered/Resolved]
  - Mobility decreased [Unknown]
  - Bone disorder [Unknown]
  - Pain [Unknown]
  - White blood cell count decreased [Not Recovered/Not Resolved]
  - Anxiety [Unknown]
  - Asthenia [Unknown]
  - Iron deficiency [Unknown]
  - Rheumatoid arthritis [Not Recovered/Not Resolved]
  - Fall [Unknown]
  - Malaise [Not Recovered/Not Resolved]
  - Pneumonia [Recovered/Resolved]

NARRATIVE: CASE EVENT DATE: 2009
